FAERS Safety Report 8379976-6 (Version None)
Quarter: 2012Q2

REPORT INFORMATION
  Report Type: 
  Country: None (occurrence: None)
  Receive Date: 20120523
  Receipt Date: 20120509
  Transmission Date: 20120825
  Serious: Yes (Hospitalization)
  Sender: FDA-Public Use
  Company Number: IT-ELI_LILLY_AND_COMPANY-IT201204006265

PATIENT
  Sex: Male

DRUGS (4)
  1. PAROXETINE HYDROCHLORIDE [Concomitant]
     Dosage: 1 DF, QD
     Route: 048
     Dates: start: 20110318, end: 20120317
  2. DEPAKENE [Concomitant]
     Dosage: 1 DF, QD
     Route: 048
     Dates: start: 20110318, end: 20120317
  3. ZYPREXA [Suspect]
     Dosage: 1 DF, QD
     Route: 048
     Dates: start: 20110318, end: 20120317
  4. LORAZEPAM [Concomitant]
     Dosage: 1 DF, QD
     Route: 048
     Dates: start: 20110318, end: 20120317

REACTIONS (3)
  - ABDOMINAL PAIN UPPER [None]
  - ASPARTATE AMINOTRANSFERASE INCREASED [None]
  - ALANINE AMINOTRANSFERASE INCREASED [None]
